FAERS Safety Report 6472496-5 (Version None)
Quarter: 2009Q4

REPORT INFORMATION
  Report Type: 
  Country: None (occurrence: None)
  Receive Date: 20091119
  Receipt Date: 20091007
  Transmission Date: 20100525
  Serious: No
  Sender: FDA-Public Use
  Company Number: WAES 0910USA01079

PATIENT

DRUGS (3)
  1. JANUVIA [Suspect]
     Dosage: PO
     Route: 048
  2. GLYBURIDE [Concomitant]
  3. METFORMIN [Concomitant]

REACTIONS (2)
  - FATIGUE [None]
  - PAIN [None]
